FAERS Safety Report 21726355 (Version 1)
Quarter: 2022Q4

REPORT INFORMATION
  Report Type: Spontaneous
  Country: FR (occurrence: FR)
  Receive Date: 20221214
  Receipt Date: 20221214
  Transmission Date: 20230113
  Serious: Yes (Hospitalization, Other)
  Sender: FDA-Public Use
  Company Number: FR-AFSSAPS-MP20223463

PATIENT
  Age: 6 Day
  Sex: Male
  Weight: 4.44 kg

DRUGS (1)
  1. LEVETIRACETAM [Suspect]
     Active Substance: LEVETIRACETAM
     Indication: Status epilepticus
     Dosage: 100 MILLIGRAM/KILOGRAM, ONCE A DAY
     Route: 065
     Dates: start: 20221028, end: 20221031

REACTIONS (4)
  - Hypoventilation neonatal [Recovered/Resolved]
  - Somnolence [Recovered/Resolved]
  - Wrong dose [Recovered/Resolved]
  - Accidental overdose [Recovered/Resolved]

NARRATIVE: CASE EVENT DATE: 20221028
